FAERS Safety Report 14656595 (Version 4)
Quarter: 2018Q2

REPORT INFORMATION
  Report Type: Spontaneous
  Country: PL (occurrence: PL)
  Receive Date: 20180319
  Receipt Date: 20180620
  Transmission Date: 20180711
  Serious: Yes (Hospitalization, Other)
  Sender: FDA-Public Use
  Company Number: PL-PFIZER INC-2018109499

PATIENT
  Age: 44 Year
  Sex: Male

DRUGS (15)
  1. FOSFOMYCIN [Suspect]
     Active Substance: FOSFOMYCIN
     Indication: URINARY TRACT INFECTION
     Dosage: 3 G, QW
     Route: 065
     Dates: start: 20140101, end: 20140101
  2. FOSFOMYCIN [Suspect]
     Active Substance: FOSFOMYCIN
     Dosage: 3 G, UNK
     Route: 048
     Dates: start: 2014, end: 2014
  3. AMIKACIN SULFATE. [Suspect]
     Active Substance: AMIKACIN SULFATE
     Indication: URINARY TRACT INFECTION
     Dosage: 500 MG, QD
     Route: 065
     Dates: start: 20140101, end: 2014
  4. MEROPENEM. [Suspect]
     Active Substance: MEROPENEM
     Indication: PATHOGEN RESISTANCE
     Dosage: UNK
  5. CILASTATIN/IMIPENEM [Suspect]
     Active Substance: CILASTATIN SODIUM\IMIPENEM
     Indication: PATHOGEN RESISTANCE
     Dosage: 3000 MG, QD
     Route: 065
     Dates: start: 20140101, end: 20140101
  6. MEROPENEM. [Suspect]
     Active Substance: MEROPENEM
     Indication: PNEUMONIA KLEBSIELLA
  7. CILASTATIN/IMIPENEM [Suspect]
     Active Substance: CILASTATIN SODIUM\IMIPENEM
     Indication: PROPHYLAXIS
     Dosage: 500/500 MG TID
     Dates: start: 201405
  8. CILASTATIN/IMIPENEM [Suspect]
     Active Substance: CILASTATIN SODIUM\IMIPENEM
     Dosage: 1000 MG, 1X/DAY
     Dates: start: 2014, end: 2014
  9. FOSFOMYCIN [Suspect]
     Active Substance: FOSFOMYCIN
     Dosage: 3 G, UNK
     Route: 065
     Dates: start: 20140101, end: 20140101
  10. AMIKACIN SULFATE. [Suspect]
     Active Substance: AMIKACIN SULFATE
     Indication: PNEUMONIA KLEBSIELLA
     Dosage: UNK
  11. CILASTATIN/IMIPENEM [Suspect]
     Active Substance: CILASTATIN SODIUM\IMIPENEM
     Indication: URINARY TRACT INFECTION
     Dosage: 3000 MG, 1X/DAY
     Route: 065
     Dates: start: 20140101, end: 20140101
  12. CILASTATIN/IMIPENEM [Suspect]
     Active Substance: CILASTATIN SODIUM\IMIPENEM
     Indication: PNEUMONIA KLEBSIELLA
     Dosage: 1000 MG, 1X/DAY
     Route: 065
     Dates: start: 2014, end: 2014
  13. FOSFOMYCIN [Suspect]
     Active Substance: FOSFOMYCIN
     Indication: PROPHYLAXIS URINARY TRACT INFECTION
     Dosage: 3 G, WEEKLY
     Route: 065
     Dates: start: 20140101, end: 20140101
  14. MEROPENEM. [Suspect]
     Active Substance: MEROPENEM
     Indication: URINARY TRACT INFECTION
     Dosage: UNK
     Route: 065
     Dates: start: 20140101, end: 2014
  15. AMIKACIN SULFATE. [Suspect]
     Active Substance: AMIKACIN SULFATE
     Indication: PATHOGEN RESISTANCE

REACTIONS (9)
  - Pyuria [Recovered/Resolved]
  - Klebsiella infection [Recovered/Resolved]
  - C-reactive protein increased [Recovered/Resolved]
  - Pyrexia [Recovered/Resolved]
  - Procalcitonin increased [Recovered/Resolved]
  - Pathogen resistance [Unknown]
  - Drug ineffective [Unknown]
  - Urinary tract infection [Recovered/Resolved]
  - Drug resistance [Unknown]

NARRATIVE: CASE EVENT DATE: 2014
